FAERS Safety Report 21741459 (Version 2)
Quarter: 2022Q4

REPORT INFORMATION
  Report Type: Spontaneous
  Country: CO (occurrence: CO)
  Receive Date: 20221216
  Receipt Date: 20221221
  Transmission Date: 20230113
  Serious: Yes (Hospitalization, Other)
  Sender: FDA-Public Use
  Company Number: CO-MLMSERVICE-20221206-3956481-1

PATIENT
  Age: 43 Year
  Sex: Female

DRUGS (11)
  1. HYDROCORTISONE SODIUM SUCCINATE [Suspect]
     Active Substance: HYDROCORTISONE SODIUM SUCCINATE
     Indication: Infection
     Dosage: 100 MG, 3X/DAY
     Route: 042
  2. CISATRACURIUM [Suspect]
     Active Substance: CISATRACURIUM
     Indication: Neuromuscular blocking therapy
     Dosage: 0.15 MG/KG INITIAL DOSE
  3. CISATRACURIUM [Suspect]
     Active Substance: CISATRACURIUM
     Dosage: 0.03 MG/KG MAINTENANCE DOSE OF INTERMITTENT
     Route: 042
  4. DEXMEDETOMIDINE [Concomitant]
     Active Substance: DEXMEDETOMIDINE
     Indication: Sedation
     Dosage: UNK
  5. CLARITHROMYCIN [Concomitant]
     Active Substance: CLARITHROMYCIN
     Indication: Infection
     Dosage: UNK
  6. MAGNESIUM SULFATE [Concomitant]
     Active Substance: MAGNESIUM SULFATE
     Indication: Infection
     Dosage: UNK
  7. PROPOFOL [Concomitant]
     Active Substance: PROPOFOL
     Indication: Sedation
     Dosage: 1 MG/KG LOADING DOSE
  8. PROPOFOL [Concomitant]
     Active Substance: PROPOFOL
     Dosage: 1 MG/KG MAINTENANCE DOSE
  9. PIPERACILLIN AND TAZOBACTAM [Concomitant]
     Active Substance: PIPERACILLIN SODIUM\TAZOBACTAM SODIUM
     Indication: Infection
     Dosage: UNK
  10. MIDAZOLAM [Concomitant]
     Active Substance: MIDAZOLAM
     Indication: Sedation
     Dosage: 0.05 MG/KG MAINTENANCE DOSE
  11. MIDAZOLAM [Concomitant]
     Active Substance: MIDAZOLAM
     Dosage: 0.2 MG/KG LOADING DOSE

REACTIONS (4)
  - Quadriplegia [Recovered/Resolved]
  - Facial paresis [Recovered/Resolved]
  - Intensive care unit acquired weakness [Recovered/Resolved]
  - Off label use [Unknown]
